FAERS Safety Report 18022745 (Version 1)
Quarter: 2020Q3

REPORT INFORMATION
  Report Type: Spontaneous
  Country: PH (occurrence: PH)
  Receive Date: 20200715
  Receipt Date: 20200715
  Transmission Date: 20201103
  Serious: Yes (Death)
  Sender: FDA-Public Use
  Company Number: PH-ROCHE-2638698

PATIENT
  Age: 53 Year
  Sex: Female
  Weight: 48.5 kg

DRUGS (2)
  1. ACTEMRA [Suspect]
     Active Substance: TOCILIZUMAB
     Indication: COVID-19
     Dosage: 5 VIALS OF 80MG/4ML (SINGLE DOSE)
     Route: 042
     Dates: start: 20200619, end: 20200619
  2. NOREPINEPHRINE. [Concomitant]
     Active Substance: NOREPINEPHRINE

REACTIONS (3)
  - General physical health deterioration [Fatal]
  - Intentional product use issue [Unknown]
  - Off label use [Unknown]

NARRATIVE: CASE EVENT DATE: 20200619
